FAERS Safety Report 5353589-2 (Version None)
Quarter: 2007Q2

REPORT INFORMATION
  Report Type: 
  Country: None (occurrence: None)
  Receive Date: 20070612
  Receipt Date: 20070530
  Transmission Date: 20071010
  Serious: Yes (Hospitalization)
  Sender: FDA-Public Use
  Company Number: IT-KINGPHARMUSA00001-K200700667

PATIENT

DRUGS (5)
  1. SYNERCID [Suspect]
     Indication: ENTEROCOCCAL INFECTION
     Dosage: 7 MG/KG, TID
     Route: 042
     Dates: start: 20020519, end: 20020527
  2. ILLEGIBLE FORTE [Concomitant]
     Dosage: UNK MG, BID
     Dates: start: 20070517
  3. CYCLOVIRAN /00587301/ [Concomitant]
     Dosage: 40 MG, X3
  4. CYCLOSPORINE [Concomitant]
     Route: 048
     Dates: start: 20070404
  5. FLUCONAZOLE [Concomitant]
     Dosage: 200 MG, UNK
     Route: 048
     Dates: start: 20070331

REACTIONS (4)
  - ASTHENIA [None]
  - HYPOXIA [None]
  - MUSCULOSKELETAL DISORDER [None]
  - PAIN [None]
